FAERS Safety Report 8976678 (Version 1)
Quarter: 2012Q4

REPORT INFORMATION
  Report Type: 
  Country: GB (occurrence: GB)
  Receive Date: 20121220
  Receipt Date: 20121220
  Transmission Date: 20130627
  Serious: Yes (Life-Threatening, Hospitalization)
  Sender: FDA-Public Use
  Company Number: GB-BANPHARM-20120427

PATIENT
  Age: 45 Year
  Sex: Female
  Weight: 75 kg

DRUGS (4)
  1. IBUPROFEN UNKNOWN PRODUCT [Suspect]
     Indication: BACK PAIN
     Dosage: 400mg, PRN,
     Route: 048
     Dates: start: 2002, end: 20051019
  2. CO-CODAMOL [Concomitant]
     Indication: BACK PAIN
     Route: 048
     Dates: start: 2000
  3. EVENING PRIMROSE OIL [Concomitant]
     Indication: MENOPAUSE
     Dosage: 1 DF, QD,
     Route: 048
     Dates: start: 200504
  4. GTN [Concomitant]
     Indication: CHEST PAIN
     Dosage: 300?g, 1 DF,
     Route: 060
     Dates: start: 200510

REACTIONS (4)
  - Angina pectoris [Not Recovered/Not Resolved]
  - Oedema peripheral [Not Recovered/Not Resolved]
  - Microcytic anaemia [Not Recovered/Not Resolved]
  - Overdose [Unknown]
